FAERS Safety Report 22196788 (Version 2)
Quarter: 2023Q2

REPORT INFORMATION
  Report Type: Spontaneous
  Country: JP (occurrence: JP)
  Receive Date: 20230411
  Receipt Date: 20230505
  Transmission Date: 20230721
  Serious: Yes (Life-Threatening, Hospitalization, Other)
  Sender: FDA-Public Use
  Company Number: JP-CORZA MEDICAL GMBH-2023-JP-002210

PATIENT
  Age: 78 Year
  Sex: Female

DRUGS (4)
  1. TACHOSIL [Suspect]
     Active Substance: FIBRINOGEN HUMAN\THROMBIN HUMAN
     Indication: Myocardial rupture
     Dosage: UNK, SINGLE
     Route: 061
     Dates: start: 20150304, end: 20150304
  2. TACHOSIL [Suspect]
     Active Substance: FIBRINOGEN HUMAN\THROMBIN HUMAN
     Indication: Haemorrhagic infarction
  3. TACHOSIL [Suspect]
     Active Substance: FIBRINOGEN HUMAN\THROMBIN HUMAN
     Indication: Tissue sealing
  4. TACHOSIL [Suspect]
     Active Substance: FIBRINOGEN HUMAN\THROMBIN HUMAN
     Indication: Wound secretion

REACTIONS (1)
  - Cardiac pseudoaneurysm [Recovered/Resolved]

NARRATIVE: CASE EVENT DATE: 20150604
